APPROVED DRUG PRODUCT: CAPEX
Active Ingredient: FLUOCINOLONE ACETONIDE
Strength: 0.01%
Dosage Form/Route: SHAMPOO;TOPICAL
Application: N020001 | Product #001
Applicant: GALDERMA LABORATORIES LP
Approved: Aug 27, 1990 | RLD: Yes | RS: No | Type: DISCN